FAERS Safety Report 9592254 (Version 2)
Quarter: 2014Q1

REPORT INFORMATION
  Report Type: Spontaneous
  Country: GB (occurrence: GB)
  Receive Date: 20131004
  Receipt Date: 20140109
  Transmission Date: 20141002
  Serious: Yes (Other)
  Sender: FDA-Public Use
  Company Number: GB-BRISTOL-MYERS SQUIBB COMPANY-19467950

PATIENT
  Sex: Female

DRUGS (11)
  1. ABILIFY [Suspect]
     Indication: ANXIETY
  2. ABILIFY [Suspect]
     Indication: BORDERLINE PERSONALITY DISORDER
  3. ABILIFY [Suspect]
     Indication: DEPRESSION
  4. NORTRIPTYLINE HCL [Suspect]
     Indication: DEPRESSION
  5. NORTRIPTYLINE HCL [Suspect]
     Indication: VOMITING
  6. CHLORPROMAZINE [Suspect]
     Indication: ANXIETY
  7. CHLORPROMAZINE [Suspect]
     Indication: DEPRESSION
  8. CHLORPROMAZINE [Suspect]
     Indication: BORDERLINE PERSONALITY DISORDER
  9. LYRICA [Suspect]
     Indication: ANXIETY
  10. LYRICA [Suspect]
     Indication: DEPRESSION
  11. LYRICA [Suspect]
     Indication: BORDERLINE PERSONALITY DISORDER

REACTIONS (3)
  - Hypertension [Unknown]
  - Coagulopathy [Not Recovered/Not Resolved]
  - Tachycardia [Unknown]
